FAERS Safety Report 4667169-5 (Version None)
Quarter: 2005Q2

REPORT INFORMATION
  Report Type: 
  Country: None (occurrence: None)
  Receive Date: 20050520
  Receipt Date: 20040630
  Transmission Date: 20051028
  Serious: Yes (Death, Hospitalization, Other)
  Sender: FDA-Public Use
  Company Number: PHEH2004US07120

PATIENT
  Age: 70 Year
  Sex: Female

DRUGS (12)
  1. VELCADE [Concomitant]
  2. DECADRON [Concomitant]
  3. EPOGEN [Concomitant]
  4. NEUPOGEN [Concomitant]
  5. THALIDOMIDE [Concomitant]
  6. CYTOXAN [Concomitant]
  7. VEPESID [Concomitant]
  8. PLATINOL [Concomitant]
  9. PREDNISONE TABLETS USP (NGX) [Concomitant]
  10. ADRIAMYCIN PFS [Concomitant]
  11. VINCRISTINE [Concomitant]
  12. ZOMETA [Suspect]
     Indication: MULTIPLE MYELOMA
     Dosage: 4 MG, QMO
     Route: 042
     Dates: start: 20011218, end: 20040603

REACTIONS (7)
  - DENTAL CARIES [None]
  - JAW DISORDER [None]
  - MALIGNANT NEOPLASM PROGRESSION [None]
  - OSTEONECROSIS [None]
  - PAIN IN JAW [None]
  - PLATELET COUNT DECREASED [None]
  - TOOTH DISORDER [None]
